FAERS Safety Report 13621711 (Version 1)
Quarter: 2017Q2

REPORT INFORMATION
  Report Type: Spontaneous
  Country: US (occurrence: US)
  Receive Date: 20170607
  Receipt Date: 20170607
  Transmission Date: 20170830
  Serious: No
  Sender: FDA-Public Use
  Company Number: US-ROCHE-1866894

PATIENT
  Age: 78 Year
  Sex: Male

DRUGS (3)
  1. KLONOPIN [Suspect]
     Active Substance: CLONAZEPAM
     Indication: ALCOHOL PROBLEM
     Dosage: 0.5 MG IN AM AND 0.5 MG IN PM ;ONGOING: NO
     Route: 048
  2. KLONOPIN [Suspect]
     Active Substance: CLONAZEPAM
     Dosage: 0.25 MG IN AM AND 0.5 MG IN PM ;ONGOING: YES
     Route: 048
  3. VALIUM [Suspect]
     Active Substance: DIAZEPAM
     Indication: ANXIETY
     Route: 065

REACTIONS (4)
  - Diabetes mellitus [Recovered/Resolved with Sequelae]
  - Anxiety [Not Recovered/Not Resolved]
  - Hallucination [Unknown]
  - Wrong technique in product usage process [Unknown]
